FAERS Safety Report 13285366 (Version 1)
Quarter: 2017Q1

REPORT INFORMATION
  Report Type: Spontaneous
  Country: GB (occurrence: GB)
  Receive Date: 20170301
  Receipt Date: 20170301
  Transmission Date: 20170428
  Serious: Yes (Other)
  Sender: FDA-Public Use
  Company Number: PHHY2017GB027504

PATIENT
  Sex: Male

DRUGS (2)
  1. ADOPORT [Suspect]
     Active Substance: TACROLIMUS
     Dosage: 0.5 MG, UNK
     Route: 065
  2. ADOPORT [Suspect]
     Active Substance: TACROLIMUS
     Indication: PRODUCT USED FOR UNKNOWN INDICATION
     Dosage: 1 MG, UNK
     Route: 065

REACTIONS (1)
  - Hand fracture [Unknown]
